FAERS Safety Report 9339704 (Version 3)
Quarter: 2014Q2

REPORT INFORMATION
  Report Type: Spontaneous
  Country: US (occurrence: US)
  Receive Date: 20130610
  Receipt Date: 20140407
  Transmission Date: 20141212
  Serious: No
  Sender: FDA-Public Use
  Company Number: US-BIOGENIDEC-2013BI051535

PATIENT
  Age: 44 Year
  Sex: Female

DRUGS (9)
  1. TYSABRI [Suspect]
     Indication: MULTIPLE SCLEROSIS
     Route: 042
  2. AMPYRA [Concomitant]
     Indication: GAIT DISTURBANCE
  3. NITROFURANTOIN [Concomitant]
  4. FISH OIL [Concomitant]
  5. VITAMIN C [Concomitant]
  6. CALCIUM D3 [Concomitant]
  7. CRANBERRY [Concomitant]
  8. IRON [Concomitant]
  9. BACLOFEN [Concomitant]

REACTIONS (1)
  - Urinary tract infection [Recovered/Resolved]
